FAERS Safety Report 11456844 (Version 1)
Quarter: 2015Q3

REPORT INFORMATION
  Report Type: Report from Study
  Country: BR (occurrence: BR)
  Receive Date: 20150904
  Receipt Date: 20150904
  Transmission Date: 20151125
  Serious: Yes (Other)
  Sender: FDA-Public Use
  Company Number: BR-ROCHE-1314299

PATIENT
  Age: 76 Year
  Sex: Male

DRUGS (1)
  1. ZELBORAF [Suspect]
     Active Substance: VEMURAFENIB
     Indication: SUPERFICIAL SPREADING MELANOMA STAGE UNSPECIFIED
     Route: 065
     Dates: start: 201303, end: 201309

REACTIONS (4)
  - Squamous cell carcinoma [Unknown]
  - Respiratory disorder [Unknown]
  - Photosensitivity reaction [Unknown]
  - Hyperkeratosis [Unknown]

NARRATIVE: CASE EVENT DATE: 201307
